FAERS Safety Report 6370925-9 (Version None)
Quarter: 2009Q3

REPORT INFORMATION
  Report Type: 
  Country: None (occurrence: None)
  Receive Date: 20090923
  Receipt Date: 20070822
  Transmission Date: 20100115
  Serious: No
  Sender: FDA-Public Use
  Company Number: US-ASTRAZENECA-2006UW22629

PATIENT
  Age: 21200 Day
  Sex: Female
  Weight: 72.1 kg

DRUGS (10)
  1. SEROQUEL [Suspect]
     Indication: DEPRESSION
     Dosage: 25-100 MG
     Route: 048
     Dates: start: 20030303
  2. SEROQUEL [Suspect]
     Indication: PANIC ATTACK
     Dosage: 25-100 MG
     Route: 048
     Dates: start: 20030303
  3. SEROQUEL [Suspect]
     Route: 048
  4. SEROQUEL [Suspect]
     Route: 048
  5. GLIPIZIDE [Concomitant]
     Route: 065
  6. ACETAMINOPHEN [Concomitant]
     Route: 065
  7. TOPIRAMATE [Concomitant]
     Dosage: 25-100 MG STRENGTH DISPENSED
     Route: 065
  8. LEXAPRO [Concomitant]
     Route: 065
  9. PROZAC [Concomitant]
     Route: 065
  10. CLONAZEPAM [Concomitant]
     Route: 065

REACTIONS (3)
  - ACARODERMATITIS [None]
  - DIABETES MELLITUS [None]
  - PHARYNGITIS [None]
